FAERS Safety Report 25405916 (Version 1)
Quarter: 2025Q2

REPORT INFORMATION
  Report Type: Spontaneous
  Country: ES (occurrence: ES)
  Receive Date: 20250606
  Receipt Date: 20250606
  Transmission Date: 20250717
  Serious: Yes (Other)
  Sender: TERSERA THERAPEUTICS
  Company Number: ES-PFIZER INC-PV202500064629

PATIENT

DRUGS (5)
  1. GOSERELIN [Suspect]
     Active Substance: GOSERELIN
     Indication: Breast cancer metastatic
     Route: 065
     Dates: start: 201801
  2. ZOLADEX [Suspect]
     Active Substance: GOSERELIN ACETATE
     Indication: Breast cancer metastatic
     Route: 065
  3. PALBOCICLIB [Suspect]
     Active Substance: PALBOCICLIB
     Indication: Breast cancer metastatic
     Route: 065
     Dates: start: 201801
  4. PALBOCICLIB [Suspect]
     Active Substance: PALBOCICLIB
     Route: 065
     Dates: start: 201804
  5. LETROZOLE [Suspect]
     Active Substance: LETROZOLE
     Indication: Breast cancer metastatic
     Route: 065
     Dates: start: 201801

REACTIONS (1)
  - Neutropenia [Unknown]
